FAERS Safety Report 21442487 (Version 1)
Quarter: 2022Q4

REPORT INFORMATION
  Report Type: Spontaneous
  Country: US (occurrence: None)
  Receive Date: 20221010
  Receipt Date: 20221010
  Transmission Date: 20230112
  Serious: No
  Sender: FDA-Public Use
  Company Number: None

PATIENT
  Age: 62 Year
  Sex: Male
  Weight: 70.03 kg

DRUGS (9)
  1. COPIKTRA [Suspect]
     Active Substance: DUVELISIB
     Indication: Follicular lymphoma
     Dosage: FREQUENCY : TWICE A DAY;?
     Route: 048
  2. AZITHROMYCIN [Concomitant]
     Active Substance: AZITHROMYCIN
  3. BACTRIM DS [Concomitant]
     Active Substance: SULFAMETHOXAZOLE\TRIMETHOPRIM
  4. ELIQUIS [Concomitant]
     Active Substance: APIXABAN
  5. MELATONIN [Concomitant]
     Active Substance: MELATONIN
  6. VITAMINS [Concomitant]
     Active Substance: VITAMINS
  7. TAZVERIK [Concomitant]
     Active Substance: TAZEMETOSTAT HYDROBROMIDE
  8. TESSALON [Concomitant]
     Active Substance: BENZONATATE
  9. TRAMADOL [Concomitant]

REACTIONS (2)
  - Nasopharyngitis [None]
  - Pneumonia [None]
